FAERS Safety Report 4431158-6 (Version None)
Quarter: 2004Q3

REPORT INFORMATION
  Report Type: 
  Country: None (occurrence: None)
  Receive Date: 20040818
  Receipt Date: 20040805
  Transmission Date: 20050211
  Serious: Yes (Other)
  Sender: FDA-Public Use
  Company Number: SUSI-2004-00453

PATIENT
  Sex: Male

DRUGS (1)
  1. ADDERALL XR (AMPHETAMINE ASPARTATE, AMPHETAMINE SULFATE, DEXTROAMPHETA [Suspect]
     Dosage: SEE IMAGE
     Route: 048

REACTIONS (3)
  - BLOOD PRESSURE INCREASED [None]
  - MYOCARDIAL INFARCTION [None]
  - VASCULAR OCCLUSION [None]
